FAERS Safety Report 8471835-3 (Version None)
Quarter: 2012Q2

REPORT INFORMATION
  Report Type: 
  Country: None (occurrence: None)
  Receive Date: 20120323
  Receipt Date: 20110930
  Transmission Date: 20120825
  Serious: Yes (Hospitalization)
  Sender: FDA-Public Use
  Company Number: 163-21880-11100259

PATIENT
  Age: 75 Year
  Sex: Male

DRUGS (3)
  1. BLOOD (BLOOD AND RELATED PRODUCTS) [Concomitant]
  2. REVLIMID [Suspect]
     Indication: MULTIPLE MYELOMA
     Dosage: 5 MG, DAILY, FOR 21 DAYS, PO
     Route: 048
     Dates: start: 20090826
  3. REVLIMID [Suspect]

REACTIONS (1)
  - GOUT [None]
